FAERS Safety Report 17563928 (Version 44)
Quarter: 2025Q2

REPORT INFORMATION
  Report Type: Report from Study
  Country: US (occurrence: US)
  Receive Date: 20200320
  Receipt Date: 20250606
  Transmission Date: 20250716
  Serious: Yes (Other)
  Sender: TAKEDA
  Company Number: US-SHIRE-US202010587

PATIENT
  Age: 56 Year
  Sex: Female
  Weight: 83 kg

DRUGS (72)
  1. HUMAN IMMUNOGLOBULIN G [Suspect]
     Active Substance: HUMAN IMMUNOGLOBULIN G
     Indication: Immunodeficiency common variable
     Dosage: 28 GRAM, 1/WEEK
     Dates: start: 20180305
  2. HUMAN IMMUNOGLOBULIN G [Suspect]
     Active Substance: HUMAN IMMUNOGLOBULIN G
     Dosage: 28 GRAM, 1/WEEK
     Dates: start: 20180306
  3. HUMAN IMMUNOGLOBULIN G [Suspect]
     Active Substance: HUMAN IMMUNOGLOBULIN G
     Dosage: 14 GRAM, 1/WEEK
  4. HUMAN IMMUNOGLOBULIN G [Suspect]
     Active Substance: HUMAN IMMUNOGLOBULIN G
     Dosage: 28 GRAM, 1/WEEK
     Dates: start: 20180625
  5. HUMAN IMMUNOGLOBULIN G [Suspect]
     Active Substance: HUMAN IMMUNOGLOBULIN G
     Dosage: 28 GRAM, 1/WEEK
     Dates: start: 20180626
  6. HUMAN IMMUNOGLOBULIN G [Suspect]
     Active Substance: HUMAN IMMUNOGLOBULIN G
     Dosage: 28 GRAM, 1/WEEK
  7. HUMAN IMMUNOGLOBULIN G [Suspect]
     Active Substance: HUMAN IMMUNOGLOBULIN G
     Dosage: 28 GRAM, 1/WEEK
  8. HUMAN IMMUNOGLOBULIN G [Suspect]
     Active Substance: HUMAN IMMUNOGLOBULIN G
     Dosage: 12 GRAM, 1/WEEK
  9. MIDODRINE [Suspect]
     Active Substance: MIDODRINE
     Indication: Product used for unknown indication
  10. CAFFEINE [Suspect]
     Active Substance: CAFFEINE
     Indication: Product used for unknown indication
  11. ACETAMINOPHEN [Concomitant]
     Active Substance: ACETAMINOPHEN
     Indication: Product used for unknown indication
  12. DIPHENHYDRAMINE HYDROCHLORIDE [Concomitant]
     Active Substance: DIPHENHYDRAMINE HYDROCHLORIDE
  13. LIDOCAINE [Concomitant]
     Active Substance: LIDOCAINE
     Indication: Product used for unknown indication
  14. EPINEPHRINE [Concomitant]
     Active Substance: EPINEPHRINE
     Indication: Product used for unknown indication
  15. HYDROCHLOROTHIAZIDE [Concomitant]
     Active Substance: HYDROCHLOROTHIAZIDE
  16. DIETARY SUPPLEMENT [Concomitant]
     Active Substance: DIETARY SUPPLEMENT
  17. IPRATROPIUM BROMIDE [Concomitant]
     Active Substance: IPRATROPIUM BROMIDE
  18. MAGNESIUM [Concomitant]
     Active Substance: MAGNESIUM
     Indication: Product used for unknown indication
  19. CYMBALTA [Concomitant]
     Active Substance: DULOXETINE HYDROCHLORIDE
     Indication: Product used for unknown indication
  20. RESTASIS [Concomitant]
     Active Substance: CYCLOSPORINE
  21. CLINDAMYCIN [Concomitant]
     Active Substance: CLINDAMYCIN
     Indication: Product used for unknown indication
  22. FEXOFENADINE HYDROCHLORIDE [Concomitant]
     Active Substance: FEXOFENADINE HYDROCHLORIDE
  23. SYSTANE (HYPROMELLOSE 2910 (4000 MPA.S)) [Concomitant]
     Active Substance: HYPROMELLOSE 2910 (4000 MPA.S)
  24. CHOLESTYRAMINE [Concomitant]
     Active Substance: CHOLESTYRAMINE
  25. TRAZODONE [Concomitant]
     Active Substance: TRAZODONE HYDROCHLORIDE
     Indication: Product used for unknown indication
  26. AMZEEQ [Concomitant]
     Active Substance: MINOCYCLINE HYDROCHLORIDE
  27. ZYRTEC [Concomitant]
     Active Substance: CETIRIZINE HYDROCHLORIDE
  28. ACETAMINOPHEN AND CODEINE [Concomitant]
     Active Substance: ACETAMINOPHEN\CODEINE PHOSPHATE
  29. TIZANIDINE HYDROCHLORIDE [Concomitant]
     Active Substance: TIZANIDINE HYDROCHLORIDE
  30. NASONEX [Concomitant]
     Active Substance: MOMETASONE FUROATE
     Indication: Product used for unknown indication
  31. MECLIZINE [Concomitant]
     Active Substance: MECLIZINE HYDROCHLORIDE
     Indication: Product used for unknown indication
  32. KLOR-CON [Concomitant]
     Active Substance: POTASSIUM CHLORIDE
     Indication: Product used for unknown indication
  33. POTASSIUM [Concomitant]
     Active Substance: POTASSIUM
     Indication: Product used for unknown indication
  34. CALCIUM [Concomitant]
     Active Substance: CALCIUM
     Indication: Product used for unknown indication
  35. BIOTIN [Concomitant]
     Active Substance: BIOTIN
     Indication: Product used for unknown indication
  36. ACETAMINOPHEN\HYDROCODONE [Concomitant]
     Active Substance: ACETAMINOPHEN\HYDROCODONE
     Indication: Product used for unknown indication
  37. ATORVASTATIN CALCIUM [Concomitant]
     Active Substance: ATORVASTATIN CALCIUM
     Indication: Product used for unknown indication
  38. GABAPENTIN [Concomitant]
     Active Substance: GABAPENTIN
     Indication: Product used for unknown indication
  39. NUCYNTA [Concomitant]
     Active Substance: TAPENTADOL HYDROCHLORIDE
     Indication: Product used for unknown indication
  40. NEXIUM [Concomitant]
     Active Substance: ESOMEPRAZOLE MAGNESIUM
     Indication: Product used for unknown indication
  41. MAXZIDE [Concomitant]
     Active Substance: HYDROCHLOROTHIAZIDE\TRIAMTERENE
     Indication: Product used for unknown indication
  42. VITAMIN E [Concomitant]
     Active Substance: .ALPHA.-TOCOPHEROL
     Indication: Product used for unknown indication
  43. VITAMIN C [Concomitant]
     Active Substance: ASCORBIC ACID
     Indication: Product used for unknown indication
  44. COENZYME Q10 [Concomitant]
     Active Substance: DIETARY SUPPLEMENT\UBIDECARENONE
     Indication: Product used for unknown indication
  45. FISH OIL [Concomitant]
     Active Substance: FISH OIL
     Indication: Product used for unknown indication
  46. ZYRTEC-D [Concomitant]
     Active Substance: CETIRIZINE HYDROCHLORIDE\PSEUDOEPHEDRINE HYDROCHLORIDE
     Indication: Product used for unknown indication
  47. CYANOCOBALAMIN [Concomitant]
     Active Substance: CYANOCOBALAMIN
     Indication: Product used for unknown indication
  48. VITAMINS [Concomitant]
     Active Substance: VITAMINS
     Indication: Product used for unknown indication
  49. VITAMIN D3 [Concomitant]
     Active Substance: CHOLECALCIFEROL
     Indication: Product used for unknown indication
  50. HYDROCHLOROTHIAZIDE\TRIAMTERENE [Concomitant]
     Active Substance: HYDROCHLOROTHIAZIDE\TRIAMTERENE
     Indication: Product used for unknown indication
  51. EVENING PRIMROSE OIL\HERBALS [Concomitant]
     Active Substance: EVENING PRIMROSE OIL\HERBALS
     Indication: Product used for unknown indication
  52. TIZANIDINE [Concomitant]
     Active Substance: TIZANIDINE
     Indication: Product used for unknown indication
  53. TYLENOL WITH CODEINE [Concomitant]
     Active Substance: ACETAMINOPHEN\CODEINE PHOSPHATE
     Indication: Product used for unknown indication
  54. SOOLANTRA [Concomitant]
     Active Substance: IVERMECTIN
  55. DEXILANT [Concomitant]
     Active Substance: DEXLANSOPRAZOLE
  56. MEDERMA [Concomitant]
     Active Substance: AVOBENZONE\OCTOCRYLENE\OXYBENZONE
  57. URSODIOL [Concomitant]
     Active Substance: URSODIOL
  58. IRON [Concomitant]
     Active Substance: IRON
  59. SYSTANE ULTRA [Concomitant]
     Active Substance: POLYETHYLENE GLYCOL 400\PROPYLENE GLYCOL
  60. AZELASTINE HYDROCHLORIDE [Concomitant]
     Active Substance: AZELASTINE HYDROCHLORIDE
  61. UPNEEQ [Concomitant]
     Active Substance: OXYMETAZOLINE HYDROCHLORIDE
  62. CLINDAMYCIN PHOSPHATE [Concomitant]
     Active Substance: CLINDAMYCIN PHOSPHATE
  63. DIPHENHYDRAMINE [Concomitant]
     Active Substance: DIPHENHYDRAMINE
     Indication: Product used for unknown indication
  64. TRAZODONE HCL [Concomitant]
     Active Substance: TRAZODONE HYDROCHLORIDE
  65. MECLIZINE HYDROCHLORIDE [Concomitant]
     Active Substance: MECLIZINE HYDROCHLORIDE
  66. CLONIDINE [Concomitant]
     Active Substance: CLONIDINE
  67. ATORVASTATIN [Concomitant]
     Active Substance: ATORVASTATIN
  68. MAGNESIUM GLYCINATE [Concomitant]
     Active Substance: MAGNESIUM GLYCINATE
  69. CALCIUM CARBONATE [Concomitant]
     Active Substance: CALCIUM CARBONATE
  70. CLARITIN [Concomitant]
     Active Substance: LORATADINE
  71. TRAMADOL HCL [Concomitant]
     Active Substance: TRAMADOL HYDROCHLORIDE
  72. IMODIUM A-D [Concomitant]
     Active Substance: LOPERAMIDE HYDROCHLORIDE

REACTIONS (54)
  - Squamous cell carcinoma [Unknown]
  - Cardiac flutter [Unknown]
  - Enuresis [Unknown]
  - Bacterial infection [Unknown]
  - Cyst [Unknown]
  - Joint swelling [Unknown]
  - Bacterial vaginosis [Unknown]
  - Limb injury [Unknown]
  - Urinary tract infection [Unknown]
  - Perioral dermatitis [Unknown]
  - Peripheral venous disease [Unknown]
  - Herpes virus infection [Unknown]
  - Illness [Unknown]
  - Neck pain [Not Recovered/Not Resolved]
  - Stress [Not Recovered/Not Resolved]
  - Mandibular mass [Unknown]
  - Thyroid mass [Unknown]
  - Ligament sprain [Unknown]
  - Foot fracture [Unknown]
  - Dehydration [Unknown]
  - Blood glucose abnormal [Unknown]
  - Constipation [Unknown]
  - Skin laceration [Unknown]
  - Tendon rupture [Unknown]
  - Fall [Unknown]
  - Head injury [Unknown]
  - Blood pressure decreased [Unknown]
  - Norovirus infection [Unknown]
  - Weight decreased [Unknown]
  - Seasonal allergy [Not Recovered/Not Resolved]
  - Vertigo [Unknown]
  - Infusion site haemorrhage [Unknown]
  - Palpitations [Not Recovered/Not Resolved]
  - Insomnia [Not Recovered/Not Resolved]
  - Abdominal discomfort [Unknown]
  - Hot flush [Unknown]
  - Oedema peripheral [Unknown]
  - Rash pruritic [Unknown]
  - Dyspepsia [Unknown]
  - Anxiety [Unknown]
  - Malaise [Unknown]
  - Erythema [Unknown]
  - Back pain [Not Recovered/Not Resolved]
  - Chills [Unknown]
  - Pain [Unknown]
  - Vomiting [Unknown]
  - Dizziness [Not Recovered/Not Resolved]
  - Diarrhoea [Unknown]
  - Headache [Unknown]
  - Fatigue [Unknown]
  - Nausea [Unknown]
  - Pruritus [Unknown]
  - Incorrect drug administration rate [Unknown]
  - Product dose omission in error [Unknown]

NARRATIVE: CASE EVENT DATE: 20200101
